FAERS Safety Report 9941817 (Version 1)
Quarter: 2014Q1

REPORT INFORMATION
  Report Type: Report from Study
  Country: US (occurrence: US)
  Receive Date: 20140303
  Receipt Date: 20140303
  Transmission Date: 20141002
  Serious: No
  Sender: FDA-Public Use
  Company Number: US-ABBVIE-13P-163-1042994-00

PATIENT
  Age: 44 Year
  Sex: Male

DRUGS (6)
  1. HUMIRA [Suspect]
     Indication: RHEUMATOID ARTHRITIS
     Dates: start: 20130114, end: 20130114
  2. HUMIRA [Suspect]
     Dates: start: 20130126
  3. PLAQUENIL [Concomitant]
     Indication: RHEUMATOID ARTHRITIS
     Dosage: 1 TABLET DAILY
  4. PREDNISONE [Concomitant]
     Indication: JOINT SWELLING
     Dosage: 2 TABLETS IN THE MORNING 1 TABLET AT NIGHT
  5. TOPAMAX [Concomitant]
     Indication: MIGRAINE
     Dosage: 1 TABLET DAILY
  6. FLEXERIL [Concomitant]
     Indication: BACK PAIN
     Dosage: AT NIGHT

REACTIONS (3)
  - Injection site bruising [Recovered/Resolved]
  - Muscle spasms [Recovered/Resolved]
  - Inappropriate schedule of drug administration [Recovered/Resolved]
